FAERS Safety Report 24779878 (Version 2)
Quarter: 2025Q3

REPORT INFORMATION
  Report Type: Spontaneous
  Country: US (occurrence: US)
  Receive Date: 20241226
  Receipt Date: 20250810
  Transmission Date: 20251020
  Serious: No
  Sender: ALEXION PHARMACEUTICALS
  Company Number: US-AstraZeneca-CH-00774721AM

PATIENT
  Age: 69 Year
  Sex: Male
  Weight: 78.471 kg

DRUGS (1)
  1. BEVESPI AEROSPHERE [Suspect]
     Active Substance: FORMOTEROL FUMARATE\GLYCOPYRROLATE
     Indication: Chronic obstructive pulmonary disease
     Dosage: 2 UNK, Q12H
     Dates: start: 20240813

REACTIONS (5)
  - Rash [Unknown]
  - Urticaria [Unknown]
  - Urinary tract infection [Unknown]
  - Pruritus [Unknown]
  - Vitamin D decreased [Unknown]

NARRATIVE: CASE EVENT DATE: 20240901
